FAERS Safety Report 7803191-5 (Version None)
Quarter: 2011Q4

REPORT INFORMATION
  Report Type: 
  Country: None (occurrence: None)
  Receive Date: 20111007
  Receipt Date: 20110930
  Transmission Date: 20120403
  Serious: Yes (Hospitalization)
  Sender: FDA-Public Use
  Company Number: JP-CELGENEUS-087-21660-11100357

PATIENT
  Sex: Female
  Weight: 70 kg

DRUGS (5)
  1. LEVOFLOXACIN [Concomitant]
     Route: 065
     Dates: start: 20110208
  2. ABRAXANE [Suspect]
     Indication: BREAST CANCER METASTATIC
     Dosage: 450 MILLIGRAM
     Route: 041
     Dates: start: 20110201, end: 20110201
  3. LOXONIN [Concomitant]
     Route: 048
     Dates: start: 20110201
  4. HERCEPTIN [Concomitant]
     Indication: BREAST CANCER METASTATIC
     Dosage: 420 MILLIGRAM
     Route: 065
     Dates: start: 20110201, end: 20110201
  5. GRAN [Concomitant]
     Route: 065
     Dates: start: 20110208

REACTIONS (4)
  - WHITE BLOOD CELL COUNT DECREASED [None]
  - STOMATITIS [None]
  - NEUTROPHIL COUNT DECREASED [None]
  - FEBRILE NEUTROPENIA [None]
